FAERS Safety Report 7409479-4 (Version None)
Quarter: 2011Q1

REPORT INFORMATION
  Report Type: 
  Country: None (occurrence: None)
  Receive Date: 20110301
  Receipt Date: 20100719
  Transmission Date: 20110831
  Serious: Yes (Hospitalization)
  Sender: FDA-Public Use
  Company Number: RB-13213-2010

PATIENT
  Sex: Female

DRUGS (1)
  1. SUBOXONE [Suspect]
     Indication: DRUG DEPENDENCE
     Dosage: (2 MG BID SUBLINGUAL)
     Route: 060
     Dates: end: 20100714

REACTIONS (2)
  - ABDOMINAL PAIN [None]
  - NAUSEA [None]
